FAERS Safety Report 10413419 (Version 2)
Quarter: 2014Q3

REPORT INFORMATION
  Report Type: Spontaneous
  Country: CZ (occurrence: CZ)
  Receive Date: 20140827
  Receipt Date: 20140909
  Transmission Date: 20150326
  Serious: Yes (Other)
  Sender: FDA-Public Use
  Company Number: CZ-GLAXOSMITHKLINE-B1025225A

PATIENT
  Age: 62 Year
  Sex: Male

DRUGS (5)
  1. VOTRIENT [Suspect]
     Active Substance: PAZOPANIB HYDROCHLORIDE
     Indication: RENAL CANCER
     Dosage: 200MG PER DAY
     Route: 065
     Dates: start: 20140228, end: 20140627
  2. INHIBACE PLUS [Concomitant]
  3. LOKREN [Concomitant]
     Active Substance: BETAXOLOL HYDROCHLORIDE
  4. GLURENORM [Concomitant]
  5. ANTI-DIABETIC MEDICATION [Concomitant]
     Route: 048

REACTIONS (2)
  - Renal impairment [Unknown]
  - Hepatic enzyme increased [Recovering/Resolving]

NARRATIVE: CASE EVENT DATE: 20140328
